FAERS Safety Report 6106956-3 (Version None)
Quarter: 2009Q1

REPORT INFORMATION
  Report Type: 
  Country: None (occurrence: None)
  Receive Date: 20090309
  Receipt Date: 20090305
  Transmission Date: 20090719
  Serious: Yes (Death, Hospitalization)
  Sender: FDA-Public Use
  Company Number: JP-JNJFOC-20081203585

PATIENT
  Sex: Male
  Weight: 39 kg

DRUGS (10)
  1. ITRIZOLE [Suspect]
     Route: 048
  2. ITRIZOLE [Suspect]
     Route: 048
  3. ITRIZOLE [Suspect]
     Indication: BRONCHOPULMONARY ASPERGILLOSIS
     Dosage: FOR 1 WEEK WITH REPETITIVE ADMINISTRATION
     Route: 048
  4. VFEND [Suspect]
     Route: 048
  5. VFEND [Suspect]
     Indication: BRONCHOPULMONARY ASPERGILLOSIS
     Route: 048
  6. GLAKAY [Concomitant]
     Indication: OSTEOPOROSIS
     Route: 048
  7. PREDNISOLONE [Concomitant]
     Indication: MYELODYSPLASTIC SYNDROME
     Route: 048
  8. GASTER D [Concomitant]
     Indication: GASTRITIS PROPHYLAXIS
     Route: 048
  9. ALFAROL [Concomitant]
     Indication: OSTEOPOROSIS
     Route: 048
  10. MUCOSOLVAN [Concomitant]
     Indication: INTERSTITIAL LUNG DISEASE
     Route: 048

REACTIONS (4)
  - CARDIAC FAILURE [None]
  - HYPERCAPNIA [None]
  - INTERSTITIAL LUNG DISEASE [None]
  - OEDEMA PERIPHERAL [None]
